FAERS Safety Report 20767867 (Version 2)
Quarter: 2022Q2

REPORT INFORMATION
  Report Type: Spontaneous
  Country: JP (occurrence: JP)
  Receive Date: 20220429
  Receipt Date: 20220530
  Transmission Date: 20220720
  Serious: Yes (Other)
  Sender: FDA-Public Use
  Company Number: JP-BAYER-2022A060206

PATIENT
  Age: 90 Year
  Sex: Female

DRUGS (6)
  1. EYLEA [Suspect]
     Active Substance: AFLIBERCEPT
     Indication: Macular oedema
     Dosage: INJECTION SITE : LEFT EYE, SOLUTION FOR INJECTION
     Dates: start: 20210618
  2. EYLEA [Suspect]
     Active Substance: AFLIBERCEPT
     Indication: Retinal vein occlusion
  3. BRINZOLAMIDE\TIMOLOL MALEATE [Concomitant]
     Active Substance: BRINZOLAMIDE\TIMOLOL MALEATE
     Indication: Product used for unknown indication
     Dosage: TWICE A DAY
  4. RIPASUDIL HYDROCHLORIDE DIHYDRATE [Concomitant]
     Active Substance: RIPASUDIL HYDROCHLORIDE DIHYDRATE
     Indication: Product used for unknown indication
     Dosage: TWICE A DAY
  5. ALPHAGAN P [Concomitant]
     Active Substance: BRIMONIDINE TARTRATE
     Indication: Product used for unknown indication
     Dosage: TWICE A DAY
  6. GATIFLOXACIN [Concomitant]
     Active Substance: GATIFLOXACIN
     Indication: Product used for unknown indication
     Dosage: FOUR TIMES A DAY

REACTIONS (1)
  - Glaucoma [Unknown]
